FAERS Safety Report 19898678 (Version 4)
Quarter: 2022Q1

REPORT INFORMATION
  Report Type: Spontaneous
  Country: US (occurrence: US)
  Receive Date: 20210929
  Receipt Date: 20220107
  Transmission Date: 20220423
  Serious: Yes (Other)
  Sender: FDA-Public Use
  Company Number: US-PFIZER INC-202101127403

PATIENT
  Age: 65 Year
  Sex: Female

DRUGS (2)
  1. XELJANZ XR [Suspect]
     Active Substance: TOFACITINIB CITRATE
     Indication: Rheumatoid arthritis
     Dosage: 11 MG, DAILY
     Route: 048
     Dates: start: 20190705
  2. TYLENOL [Concomitant]
     Active Substance: ACETAMINOPHEN
     Dosage: UNK

REACTIONS (8)
  - Upper respiratory tract infection [Unknown]
  - Arrhythmia [Recovered/Resolved]
  - Bronchitis [Unknown]
  - Therapeutic product effect incomplete [Unknown]
  - Heart rate increased [Recovered/Resolved]
  - Onychomycosis [Recovered/Resolved]
  - Ulnar nerve injury [Unknown]
  - Arthritis [Unknown]

NARRATIVE: CASE EVENT DATE: 20210301
